FAERS Safety Report 23176140 (Version 1)
Quarter: 2023Q4

REPORT INFORMATION
  Report Type: Report from Study
  Country: US (occurrence: US)
  Receive Date: 20231113
  Receipt Date: 20231113
  Transmission Date: 20240109
  Serious: Yes (Hospitalization)
  Sender: FDA-Public Use
  Company Number: US-TAKEDA-US-001471

PATIENT
  Age: 34 Year
  Sex: Female
  Weight: 46 kg

DRUGS (24)
  1. TEDUGLUTIDE [Suspect]
     Active Substance: TEDUGLUTIDE
     Indication: Short-bowel syndrome
     Dosage: 2 MILLIGRAM, QD
     Route: 042
     Dates: start: 20131031, end: 20140118
  2. TEDUGLUTIDE [Suspect]
     Active Substance: TEDUGLUTIDE
     Indication: Short-bowel syndrome
     Dosage: 2 MILLIGRAM, QD
     Route: 042
     Dates: start: 20131031, end: 20140118
  3. TEDUGLUTIDE [Suspect]
     Active Substance: TEDUGLUTIDE
     Indication: Short-bowel syndrome
     Dosage: 2 MILLIGRAM, QD
     Route: 042
     Dates: start: 20131031, end: 20140118
  4. TEDUGLUTIDE [Suspect]
     Active Substance: TEDUGLUTIDE
     Indication: Short-bowel syndrome
     Dosage: 2 MILLIGRAM, QD
     Route: 042
     Dates: start: 20131031, end: 20140118
  5. TEDUGLUTIDE [Suspect]
     Active Substance: TEDUGLUTIDE
     Dosage: 2 MILLIGRAM, QD
     Route: 042
     Dates: start: 20140121, end: 201510
  6. TEDUGLUTIDE [Suspect]
     Active Substance: TEDUGLUTIDE
     Dosage: 2 MILLIGRAM, QD
     Route: 042
     Dates: start: 20140121, end: 201510
  7. TEDUGLUTIDE [Suspect]
     Active Substance: TEDUGLUTIDE
     Dosage: 2 MILLIGRAM, QD
     Route: 042
     Dates: start: 20140121, end: 201510
  8. TEDUGLUTIDE [Suspect]
     Active Substance: TEDUGLUTIDE
     Dosage: 2 MILLIGRAM, QD
     Route: 042
     Dates: start: 20140121, end: 201510
  9. TEDUGLUTIDE [Suspect]
     Active Substance: TEDUGLUTIDE
     Dosage: 2 MILLIGRAM, 3/WEEK
     Route: 042
     Dates: start: 201510
  10. TEDUGLUTIDE [Suspect]
     Active Substance: TEDUGLUTIDE
     Dosage: 2 MILLIGRAM, 3/WEEK
     Route: 042
     Dates: start: 201510
  11. TEDUGLUTIDE [Suspect]
     Active Substance: TEDUGLUTIDE
     Dosage: 2 MILLIGRAM, 3/WEEK
     Route: 042
     Dates: start: 201510
  12. TEDUGLUTIDE [Suspect]
     Active Substance: TEDUGLUTIDE
     Dosage: 2 MILLIGRAM, 3/WEEK
     Route: 042
     Dates: start: 201510
  13. VITAMIN D [Concomitant]
     Active Substance: VITAMIN D NOS
     Indication: Short-bowel syndrome
     Route: 048
     Dates: start: 2000
  14. MAGNESIUM [Concomitant]
     Active Substance: MAGNESIUM
     Indication: Short-bowel syndrome
     Dosage: 2X/WK
     Route: 058
     Dates: start: 2014
  15. ZOFRAN [Concomitant]
     Active Substance: ONDANSETRON HYDROCHLORIDE
     Indication: Short-bowel syndrome
     Dosage: 1 TAB AS NEEDED
     Route: 048
     Dates: start: 20121018
  16. OXYCODONE [Concomitant]
     Active Substance: OXYCODONE
     Indication: Abdominal pain
     Dosage: 5 MG AS NEEDED
     Route: 048
     Dates: start: 1993
  17. MEPHYTON [Concomitant]
     Active Substance: PHYTONADIONE
     Indication: Short-bowel syndrome
     Route: 048
     Dates: start: 20100803
  18. PROGESTERONE [Concomitant]
     Active Substance: PROGESTERONE
     Indication: Amenorrhoea
     Dosage: 200 MG EVERY 3 MONTHS
     Route: 048
     Dates: start: 1997
  19. CIPROFLOXACIN [Concomitant]
     Active Substance: CIPROFLOXACIN
     Indication: Short-bowel syndrome
     Route: 048
     Dates: start: 20131218
  20. VITAMIN B12 [Concomitant]
     Active Substance: CYANOCOBALAMIN
     Indication: Short-bowel syndrome
     Dosage: 100 MICROGRAM EVERY 4 WEEKS
     Route: 058
     Dates: start: 20100122
  21. LOVENOX [Concomitant]
     Active Substance: ENOXAPARIN SODIUM
     Indication: Pulmonary embolism
     Dosage: 40 MILLIGRAM, BID
     Route: 058
     Dates: start: 20201011
  22. WARFARIN [Concomitant]
     Active Substance: WARFARIN
     Indication: Pulmonary embolism
     Dosage: 3 MILLIGRAM, QD
     Route: 048
     Dates: start: 20201011, end: 20201011
  23. WARFARIN [Concomitant]
     Active Substance: WARFARIN
     Dosage: 2 MILLIGRAM, QD
     Route: 048
     Dates: start: 20201012
  24. ZINC SULFATE [Concomitant]
     Active Substance: ZINC SULFATE
     Indication: Prophylaxis
     Dosage: 1 DOSAGE FORM, QD
     Route: 048
     Dates: start: 201803

REACTIONS (1)
  - Stoma prolapse [Recovered/Resolved]

NARRATIVE: CASE EVENT DATE: 20140625
